FAERS Safety Report 6403053-4 (Version None)
Quarter: 2009Q4

REPORT INFORMATION
  Report Type: 
  Country: None (occurrence: None)
  Receive Date: 20091013
  Receipt Date: 20090930
  Transmission Date: 20100525
  Serious: Yes (Hospitalization, Disabling, Other)
  Sender: FDA-Public Use
  Company Number: 2009AL006396

PATIENT
  Sex: Female

DRUGS (1)
  1. FEVERALL [Suspect]
     Indication: PAIN
     Dosage: 1 GM; IV
     Route: 042
     Dates: start: 20090310, end: 20090310

REACTIONS (3)
  - BRAIN INJURY [None]
  - CARDIAC ARREST [None]
  - HYPOTENSION [None]
